FAERS Safety Report 11906777 (Version 1)
Quarter: 2016Q1

REPORT INFORMATION
  Report Type: Spontaneous
  Country: US (occurrence: None)
  Receive Date: 20160108
  Receipt Date: 20160108
  Transmission Date: 20160526
  Serious: No
  Sender: FDA-Public Use
  Company Number: None

PATIENT
  Age: 66 Year
  Sex: Female

DRUGS (1)
  1. HUMIRA [Suspect]
     Active Substance: ADALIMUMAB
     Indication: HIDRADENITIS
     Dosage: 160MG (4 PENS) ON DAY 1, 80MG (2 PE...
     Route: 058
     Dates: start: 20151210, end: 20151215

REACTIONS (2)
  - Headache [None]
  - Hyperhidrosis [None]

NARRATIVE: CASE EVENT DATE: 20151210
